FAERS Safety Report 16669978 (Version 23)
Quarter: 2020Q3

REPORT INFORMATION
  Report Type: Report from Study
  Country: US (occurrence: US)
  Receive Date: 20190805
  Receipt Date: 20200821
  Transmission Date: 20201102
  Serious: Yes (Hospitalization)
  Sender: FDA-Public Use
  Company Number: US-ACTELION-A-US2019-193787

PATIENT
  Age: 57 Year
  Sex: Male
  Weight: 95.24 kg

DRUGS (14)
  1. ELIQUIS [Concomitant]
     Active Substance: APIXABAN
  2. REMODULIN [Suspect]
     Active Substance: TREPROSTINIL
     Dosage: 4 NG/KG, PER MIN
     Route: 042
  3. REMODULIN [Suspect]
     Active Substance: TREPROSTINIL
     Dosage: 4.5 NG/KG, PER MIN
     Route: 042
  4. REMODULIN [Suspect]
     Active Substance: TREPROSTINIL
     Dosage: 7 NG/KG, PER MIN
     Route: 042
  5. SILDENAFIL CITRATE. [Concomitant]
     Active Substance: SILDENAFIL CITRATE
  6. OPSUMIT [Suspect]
     Active Substance: MACITENTAN
     Indication: PULMONARY HYPERTENSION
     Dosage: 10 MG, QD
     Route: 048
  7. OPSUMIT [Suspect]
     Active Substance: MACITENTAN
     Dosage: 10 MG, QD
     Route: 048
  8. TYVASO [Suspect]
     Active Substance: TREPROSTINIL
     Dosage: 12 BREATHS 4X DAY
     Route: 055
  9. REMODULIN [Suspect]
     Active Substance: TREPROSTINIL
     Dosage: 5 NG/KG, PER MIN
     Route: 042
  10. ADEMPAS [Concomitant]
     Active Substance: RIOCIGUAT
  11. REMODULIN [Suspect]
     Active Substance: TREPROSTINIL
     Indication: PRODUCT USED FOR UNKNOWN INDICATION
     Dosage: 10.5 NG/KG, PER MIN
     Route: 042
  12. TYVASO [Suspect]
     Active Substance: TREPROSTINIL
     Indication: PRODUCT USED FOR UNKNOWN INDICATION
     Dosage: 9 BREATHS 4X DAY
     Route: 055
  13. REMODULIN [Suspect]
     Active Substance: TREPROSTINIL
     Dosage: 10 NG/KG, PER MIN
     Route: 042
  14. REMODULIN [Suspect]
     Active Substance: TREPROSTINIL
     Dosage: 6 NG/KG, PER MIN
     Route: 042

REACTIONS (32)
  - Pulmonary arterial hypertension [Unknown]
  - Pyrexia [Unknown]
  - Localised oedema [Unknown]
  - Complication associated with device [Unknown]
  - Catheter site discharge [Unknown]
  - Malaise [Unknown]
  - Respiratory failure [Unknown]
  - Nasopharyngitis [Unknown]
  - Vomiting [Unknown]
  - Nausea [Unknown]
  - Feeding disorder [Unknown]
  - Dyspnoea [Unknown]
  - Feeling abnormal [Unknown]
  - Product dose omission issue [Unknown]
  - Catheterisation cardiac abnormal [Unknown]
  - Thrombosis [Unknown]
  - Diarrhoea [Unknown]
  - Right atrial pressure increased [Unknown]
  - Pulmonary hypertension [Unknown]
  - Nasal congestion [Unknown]
  - Face oedema [Recovering/Resolving]
  - Oedema peripheral [Unknown]
  - Movement disorder [Recovering/Resolving]
  - Therapy change [Unknown]
  - Pulmonary arterial pressure increased [Unknown]
  - Fluid overload [Unknown]
  - Device related infection [Unknown]
  - Epistaxis [Unknown]
  - Hypoxia [Unknown]
  - Hospitalisation [Unknown]
  - Oxygen consumption increased [Recovering/Resolving]
  - Hypotension [Unknown]

NARRATIVE: CASE EVENT DATE: 20190725
